FAERS Safety Report 10761882 (Version 10)
Quarter: 2015Q4

REPORT INFORMATION
  Report Type: Report from Study
  Country: US (occurrence: US)
  Receive Date: 20150204
  Receipt Date: 20151023
  Transmission Date: 20160304
  Serious: Yes (Hospitalization, Disabling)
  Sender: FDA-Public Use
  Company Number: US-SANOFI-AVENTIS-2013SA057403

PATIENT
  Age: 61 Year
  Sex: Female
  Weight: 81 kg

DRUGS (19)
  1. PRAVACHOL [Concomitant]
     Active Substance: PRAVASTATIN SODIUM
     Route: 048
  2. PRILOSEC [Concomitant]
     Active Substance: OMEPRAZOLE MAGNESIUM
     Route: 048
  3. ACETAMINOPHEN W/HYDROCODONE [Concomitant]
     Active Substance: ACETAMINOPHEN\HYDROCODONE
     Indication: PAIN
     Dosage: DOSE-7.5 MG-500 MG TABLET AS NEEDED.
     Route: 048
  4. OMEPRAZOLE. [Concomitant]
     Active Substance: OMEPRAZOLE
     Indication: GASTROOESOPHAGEAL REFLUX DISEASE
     Dates: start: 2010
  5. VITAMIN D3 [Concomitant]
     Active Substance: CHOLECALCIFEROL
     Indication: BACK PAIN
     Route: 048
  6. CALCIUM [Concomitant]
     Active Substance: CALCIUM
  7. AUBAGIO [Suspect]
     Active Substance: TERIFLUNOMIDE
     Indication: MULTIPLE SCLEROSIS
     Route: 048
     Dates: end: 20150228
  8. VITAMIN D3 [Concomitant]
     Active Substance: CHOLECALCIFEROL
     Indication: ARTHRALGIA
     Route: 048
  9. PAXIL [Concomitant]
     Active Substance: PAROXETINE HYDROCHLORIDE
     Route: 048
  10. PRAVASTATIN [Concomitant]
     Active Substance: PRAVASTATIN\PRAVASTATIN SODIUM
     Route: 065
  11. ERGOCALCIFEROL. [Concomitant]
     Active Substance: ERGOCALCIFEROL
     Dosage: DOSE:50000 UNIT(S)
     Route: 048
  12. ACYCLOVIR. [Concomitant]
     Active Substance: ACYCLOVIR
     Dosage: FREQUENCY-AS NEEDED IF OUTBREAK OCCURS
  13. MELOXICAM. [Concomitant]
     Active Substance: MELOXICAM
     Route: 048
  14. AUBAGIO [Suspect]
     Active Substance: TERIFLUNOMIDE
     Indication: MULTIPLE SCLEROSIS
     Route: 048
     Dates: start: 20130113, end: 20140524
  15. HYDROCHLOROTHIAZIDE. [Concomitant]
     Active Substance: HYDROCHLOROTHIAZIDE
     Indication: HYPERTENSION
     Route: 048
  16. POTASSIUM CHLORIDE. [Concomitant]
     Active Substance: POTASSIUM CHLORIDE
     Route: 048
  17. VITAMIN D3 [Concomitant]
     Active Substance: CHOLECALCIFEROL
     Indication: ARTHRALGIA
     Route: 048
  18. TRAMADOL HYDROCHLORIDE. [Concomitant]
     Active Substance: TRAMADOL HYDROCHLORIDE
     Route: 065
  19. IBUPROFEN. [Concomitant]
     Active Substance: IBUPROFEN
     Dosage: FREQUENCY- AS NEEDED
     Route: 065

REACTIONS (26)
  - Breast cyst [Recovered/Resolved]
  - Visual acuity reduced [Recovered/Resolved]
  - Skin discolouration [Unknown]
  - Ingrown hair [Recovering/Resolving]
  - Paraesthesia [Unknown]
  - Diplopia [Unknown]
  - Pain [Not Recovered/Not Resolved]
  - Discomfort [Unknown]
  - Hypoaesthesia [Recovered/Resolved]
  - Dry skin [Not Recovered/Not Resolved]
  - Influenza [Recovering/Resolving]
  - Rash [Unknown]
  - Fatigue [Unknown]
  - Stress [Not Recovered/Not Resolved]
  - Cough [Unknown]
  - Pyrexia [Recovered/Resolved]
  - Eyelid ptosis [Unknown]
  - Headache [Unknown]
  - Unevaluable event [Unknown]
  - Pneumonia [Unknown]
  - Thrombosis [Unknown]
  - Oedema peripheral [Not Recovered/Not Resolved]
  - Acne [Recovered/Resolved]
  - Lethargy [Unknown]
  - Memory impairment [Unknown]
  - Skin exfoliation [Recovered/Resolved]

NARRATIVE: CASE EVENT DATE: 20130122
